FAERS Safety Report 7622142-X (Version None)
Quarter: 2011Q3

REPORT INFORMATION
  Report Type: 
  Country: None (occurrence: None)
  Receive Date: 20110720
  Receipt Date: 20110419
  Transmission Date: 20111222
  Serious: Yes (Other)
  Sender: FDA-Public Use
  Company Number: US-BAYER-2011-034785

PATIENT
  Sex: Female

DRUGS (2)
  1. YASMIN [Suspect]
     Dosage: UNK
     Dates: start: 20041201, end: 20051001
  2. YASMIN [Suspect]
     Dosage: UNK
     Dates: start: 20060201, end: 20060301

REACTIONS (3)
  - BILIARY DYSKINESIA [None]
  - CHOLECYSTITIS ACUTE [None]
  - CHOLELITHIASIS [None]
